FAERS Safety Report 20541678 (Version 1)
Quarter: 2022Q1

REPORT INFORMATION
  Report Type: Spontaneous
  Country: CA (occurrence: CA)
  Receive Date: 20220302
  Receipt Date: 20220302
  Transmission Date: 20220423
  Serious: Yes (Other)
  Sender: FDA-Public Use
  Company Number: CA-JNJFOC-20211208398

PATIENT
  Age: 72 Year

DRUGS (12)
  1. INVOKANA [Suspect]
     Active Substance: CANAGLIFLOZIN
     Indication: Type 2 diabetes mellitus
     Route: 048
  2. AMLODIPINE [Concomitant]
     Active Substance: AMLODIPINE BESYLATE
     Route: 065
  3. GLICLAZIDE [Concomitant]
     Active Substance: GLICLAZIDE
     Route: 065
  4. INDAPAMIDE [Concomitant]
     Active Substance: INDAPAMIDE
     Route: 065
  5. INSULATARD NPH HUMAN [Concomitant]
     Active Substance: INSULIN HUMAN
     Route: 058
  6. METFORMIN [Concomitant]
     Active Substance: METFORMIN HYDROCHLORIDE
     Route: 065
  7. ONGLYZA [SAXAGLIPTIN] [Concomitant]
     Route: 065
  8. PANTOPRAZOLE [Concomitant]
     Active Substance: PANTOPRAZOLE
     Route: 042
  9. ROSUVASTATIN [Concomitant]
     Active Substance: ROSUVASTATIN
     Route: 065
  10. SOLIFENACIN [Concomitant]
     Active Substance: SOLIFENACIN
     Route: 065
  11. CHOLECALCIFEROL [Concomitant]
     Active Substance: CHOLECALCIFEROL
     Route: 065
  12. MINERALS\VITAMINS [Concomitant]
     Active Substance: MINERALS\VITAMINS
     Route: 065

REACTIONS (4)
  - Dermatosis [Unknown]
  - Erythema [Unknown]
  - Pruritus [Unknown]
  - Scar [Unknown]
